FAERS Safety Report 5397616-5 (Version None)
Quarter: 2007Q3

REPORT INFORMATION
  Report Type: 
  Country: None (occurrence: None)
  Receive Date: 20070726
  Receipt Date: 20070718
  Transmission Date: 20080115
  Serious: Yes (Other)
  Sender: FDA-Public Use
  Company Number: BR-JNJFOC-20070704973

PATIENT
  Age: 6 Year
  Sex: Male
  Weight: 20.7 kg

DRUGS (4)
  1. TOPAMAX [Suspect]
     Indication: EPILEPSY
     Dosage: 1/2 TABLET BID
     Route: 048
  2. DEPAKOTE [Concomitant]
     Indication: DRUG USE FOR UNKNOWN INDICATION
  3. EUTHYROX [Concomitant]
     Indication: HYPOTHYROIDISM
  4. PREDSIM [Concomitant]
     Indication: BLOOD CORTISOL DECREASED

REACTIONS (4)
  - ANXIETY [None]
  - EPILEPSY [None]
  - HEART RATE IRREGULAR [None]
  - TREMOR [None]
